FAERS Safety Report 5319085-3 (Version None)
Quarter: 2007Q1

REPORT INFORMATION
  Report Type: 
  Country: None (occurrence: None)
  Receive Date: 20070202
  Receipt Date: 20060515
  Transmission Date: 20070707
  Serious: No
  Sender: FDA-Public Use
  Company Number: 253348

PATIENT
  Age: 25 Year
  Sex: Male
  Weight: 74.8 kg

DRUGS (2)
  1. NOVOLOG [Suspect]
     Indication: DIABETES MELLITUS INSULIN-DEPENDENT
     Dosage: SLIDING SCALE, BASED ON CARB COUNT, SUBCUTANEOUS
     Route: 058
     Dates: start: 20010801
  2. LANTUS [Concomitant]

REACTIONS (1)
  - HYPERSENSITIVITY [None]
